FAERS Safety Report 5916152-8 (Version None)
Quarter: 2008Q4

REPORT INFORMATION
  Report Type: 
  Country: None (occurrence: None)
  Receive Date: 20081013
  Receipt Date: 20081001
  Transmission Date: 20090506
  Serious: Yes (Hospitalization, Other)
  Sender: FDA-Public Use
  Company Number: US-CELGENEUS-163-21880-08060210

PATIENT
  Sex: Male
  Weight: 90.9 kg

DRUGS (3)
  1. REVLIMID [Suspect]
     Indication: MULTIPLE MYELOMA
     Route: 048
     Dates: start: 20071213, end: 20080528
  2. DEXAMETHASONE [Suspect]
     Indication: MULTIPLE MYELOMA
     Route: 048
     Dates: start: 20071213, end: 20080527
  3. BEVACIZUMAB [Suspect]
     Indication: MULTIPLE MYELOMA
     Route: 051
     Dates: start: 20071213, end: 20080304

REACTIONS (4)
  - BLOOD GLUCOSE INCREASED [None]
  - EXFOLIATIVE RASH [None]
  - HYPERSENSITIVITY [None]
  - TROPONIN T INCREASED [None]
